FAERS Safety Report 11196207 (Version 2)
Quarter: 2015Q2

REPORT INFORMATION
  Report Type: Spontaneous
  Country: JP (occurrence: JP)
  Receive Date: 20150617
  Receipt Date: 20150629
  Transmission Date: 20150821
  Serious: Yes (Other)
  Sender: FDA-Public Use
  Company Number: JP-PFIZER INC-2015198310

PATIENT
  Age: 66 Year
  Sex: Male

DRUGS (8)
  1. GLUCOBAY [Concomitant]
     Active Substance: ACARBOSE
     Dosage: UNK
     Route: 048
     Dates: start: 20080712
  2. ACECOL [Concomitant]
     Active Substance: TEMOCAPRIL HYDROCHLORIDE
     Dosage: UNK
     Route: 048
  3. ETHYL ICOSAPENTATE [Concomitant]
     Active Substance: ETHYL ICOSAPENTATE
     Dosage: UNK
     Route: 048
  4. CARDENALIN [Suspect]
     Active Substance: DOXAZOSIN MESYLATE
     Dosage: UNK
     Route: 048
  5. MEVALOTIN [Concomitant]
     Active Substance: PRAVASTATIN SODIUM
     Dosage: UNK
     Route: 048
  6. STARSIS [Concomitant]
     Active Substance: NATEGLINIDE
     Dosage: UNK
     Route: 048
     Dates: start: 20050905, end: 20080620
  7. DEPAS [Concomitant]
     Active Substance: ETIZOLAM
     Dosage: UNK
     Route: 048
  8. AMARYL [Concomitant]
     Active Substance: GLIMEPIRIDE
     Dosage: UNK
     Route: 048
     Dates: start: 20080621

REACTIONS (1)
  - Parkinson^s disease [Not Recovered/Not Resolved]

NARRATIVE: CASE EVENT DATE: 20140618
